FAERS Safety Report 9689255 (Version 2)
Quarter: 2013Q4

REPORT INFORMATION
  Report Type: Spontaneous
  Country: US (occurrence: US)
  Receive Date: 20131114
  Receipt Date: 20131114
  Transmission Date: 20140711
  Serious: No
  Sender: FDA-Public Use
  Company Number: US-PFIZER INC-2013300445

PATIENT
  Age: 65 Year
  Sex: Female

DRUGS (1)
  1. ATORVASTATIN CALCIUM [Suspect]
     Indication: BLOOD CHOLESTEROL INCREASED
     Dosage: 40 MG, 2X/DAY
     Route: 048
     Dates: start: 201308, end: 2013

REACTIONS (1)
  - Muscle spasms [Not Recovered/Not Resolved]
